FAERS Safety Report 7898985-4 (Version None)
Quarter: 2011Q4

REPORT INFORMATION
  Report Type: 
  Country: None (occurrence: None)
  Receive Date: 20111107
  Receipt Date: 20100615
  Transmission Date: 20120403
  Serious: No
  Sender: FDA-Public Use
  Company Number: US-BAYER-201027148NA

PATIENT
  Age: 59 Year
  Sex: Female

DRUGS (1)
  1. MENOSTAR [Suspect]
     Dosage: 1 DF, ONCE
     Route: 062
     Dates: start: 20100601, end: 20100601

REACTIONS (4)
  - FLUID RETENTION [None]
  - PARAESTHESIA [None]
  - FEELING HOT [None]
  - BLOOD OESTROGEN INCREASED [None]
